FAERS Safety Report 12499950 (Version 1)
Quarter: 2016Q2

REPORT INFORMATION
  Report Type: Spontaneous
  Country: US (occurrence: None)
  Receive Date: 20160624
  Receipt Date: 20160624
  Transmission Date: 20160815
  Serious: Yes (Hospitalization)
  Sender: FDA-Public Use
  Company Number: None

PATIENT
  Age: 74 Year
  Sex: Female
  Weight: 103.45 kg

DRUGS (2)
  1. CARBOPLATIN. [Suspect]
     Active Substance: CARBOPLATIN
     Indication: OVARIAN CANCER STAGE III
     Route: 042
     Dates: start: 20160315, end: 20160315
  2. CARBOPLATIN. [Suspect]
     Active Substance: CARBOPLATIN
     Route: 042
     Dates: start: 20160315, end: 20160315

REACTIONS (5)
  - Nausea [None]
  - Fall [None]
  - Blood pressure immeasurable [None]
  - Vomiting [None]
  - Unresponsive to stimuli [None]

NARRATIVE: CASE EVENT DATE: 20160315
